FAERS Safety Report 7392152-9 (Version None)
Quarter: 2011Q2

REPORT INFORMATION
  Report Type: 
  Country: None (occurrence: None)
  Receive Date: 20110404
  Receipt Date: 20110328
  Transmission Date: 20111010
  Serious: Yes (Other)
  Sender: FDA-Public Use
  Company Number: A0920317A

PATIENT
  Age: 48 Year
  Sex: Female

DRUGS (4)
  1. FLONASE [Suspect]
     Indication: EAR INFECTION
     Route: 045
     Dates: start: 20110201, end: 20110201
  2. BACTRIM [Concomitant]
  3. VERAMYST [Suspect]
     Indication: EAR INFECTION
     Dosage: 2SPR PER DAY
     Route: 045
     Dates: start: 20110320, end: 20110327
  4. KEFLEX [Concomitant]

REACTIONS (8)
  - DISORIENTATION [None]
  - DYSARTHRIA [None]
  - VISUAL ACUITY REDUCED [None]
  - BURNING SENSATION [None]
  - INFLAMMATION [None]
  - ANAPHYLACTIC REACTION [None]
  - DIZZINESS [None]
  - CONFUSIONAL STATE [None]
